FAERS Safety Report 5223742-7 (Version None)
Quarter: 2007Q1

REPORT INFORMATION
  Report Type: 
  Country: None (occurrence: None)
  Receive Date: 20070130
  Receipt Date: 20070118
  Transmission Date: 20070707
  Serious: Yes (Hospitalization)
  Sender: FDA-Public Use
  Company Number: 2007CG00134

PATIENT
  Age: 48 Year
  Sex: Male

DRUGS (15)
  1. FOSCAVIR [Suspect]
     Route: 042
     Dates: start: 20060825
  2. PREZISTA [Suspect]
     Route: 048
     Dates: start: 20060825
  3. OMEPRAZOLE [Concomitant]
     Route: 048
  4. LAMIVUDINE [Concomitant]
     Dates: start: 20060825
  5. ABACAVIR [Concomitant]
     Dates: start: 20060825
  6. NORVIR [Concomitant]
  7. PYRIMETHAMINE TAB [Concomitant]
  8. PENTACARINAT [Concomitant]
     Route: 055
  9. DAFALGAN [Concomitant]
  10. NORSET [Concomitant]
  11. MORPHINE SUL INJ [Concomitant]
  12. DEPAKENE [Concomitant]
  13. NONAN [Concomitant]
  14. CERNEVIT-12 [Concomitant]
  15. OLICLINOMEL [Concomitant]
     Route: 051
     Dates: start: 20060720

REACTIONS (1)
  - ADENOCARCINOMA PANCREAS [None]
